FAERS Safety Report 20783354 (Version 1)
Quarter: 2022Q2

REPORT INFORMATION
  Report Type: Spontaneous
  Country: US (occurrence: US)
  Receive Date: 20220504
  Receipt Date: 20220504
  Transmission Date: 20220721
  Serious: No
  Sender: FDA-Public Use
  Company Number: US-ALVOGEN-2021-ALVOGEN-117927

PATIENT
  Sex: Female

DRUGS (1)
  1. NITROFURANTOIN [Suspect]
     Active Substance: NITROFURANTOIN
     Indication: Diverticulitis
     Dosage: FOR 7 DAYS IN EVENING
     Route: 048

REACTIONS (2)
  - Muscular weakness [Unknown]
  - Pain in extremity [Unknown]
